FAERS Safety Report 13988764 (Version 3)
Quarter: 2017Q4

REPORT INFORMATION
  Report Type: Report from Study
  Country: RO (occurrence: RO)
  Receive Date: 20170916
  Receipt Date: 20171002
  Transmission Date: 20180321
  Serious: Yes (Hospitalization)
  Sender: FDA-Public Use
  Company Number: RO-AMGEN-ROUCT2017138909

PATIENT
  Age: 63 Year
  Sex: Female

DRUGS (16)
  1. GABARAN [Concomitant]
     Dosage: 400 MG, UNK
     Route: 048
     Dates: start: 2016
  2. SARGENOR [Concomitant]
     Dosage: 5 ML, UNK
     Route: 048
     Dates: start: 20160824
  3. EUTHYROX [Concomitant]
     Active Substance: LEVOTHYROXINE SODIUM
     Dosage: 100 MUG, UNK
     Route: 048
     Dates: start: 1990
  4. LYRICA [Concomitant]
     Active Substance: PREGABALIN
     Dosage: 75 MG, UNK
     Route: 048
     Dates: start: 2014
  5. CARFILZOMIB [Suspect]
     Active Substance: CARFILZOMIB
     Indication: PLASMA CELL MYELOMA
     Dosage: 106 MG, PER CHEMO REGIM
     Route: 042
     Dates: start: 20160810
  6. TERTENSIF [Concomitant]
     Active Substance: INDAPAMIDE
     Dosage: 1.5 MG, UNK
     Route: 048
     Dates: start: 2006
  7. ACICLOVIR [Concomitant]
     Active Substance: ACYCLOVIR
     Dosage: 200 MG, UNK
     Route: 048
     Dates: start: 20160809
  8. PRESTARIUM [Concomitant]
     Active Substance: PERINDOPRIL
     Dosage: 5 MG, UNK
     Route: 048
     Dates: start: 20170906
  9. KLACID [Concomitant]
     Active Substance: CLARITHROMYCIN
     Dosage: 250 MG, UNK
     Route: 048
     Dates: start: 20170702, end: 20170708
  10. PANTOPRAZOL [Concomitant]
     Active Substance: PANTOPRAZOLE SODIUM
     Dosage: 40 MG, UNK
     Route: 048
     Dates: start: 20160809
  11. MILURIT [Concomitant]
     Active Substance: ALLOPURINOL
     Dosage: 100 MG, UNK
     Route: 048
     Dates: start: 2008
  12. TRIPLIXAM [Concomitant]
     Active Substance: AMLODIPINE BESYLATE\INDAPAMIDE\PERINDOPRIL ARGININE
     Dosage: 1 UNK, UNK
     Route: 048
     Dates: start: 20170821, end: 20170905
  13. AMLODIPIN [Concomitant]
     Active Substance: AMLODIPINE BESYLATE
     Dosage: 5 MG, UNK
     Route: 048
     Dates: start: 20170906
  14. DORETA [Concomitant]
     Active Substance: ACETAMINOPHEN\TRAMADOL HYDROCHLORIDE
     Dosage: 1 UNK, UNK
     Route: 048
     Dates: start: 20170906
  15. DEXAMETHASONE. [Suspect]
     Active Substance: DEXAMETHASONE
     Indication: PLASMA CELL MYELOMA
     Dosage: 20 MG, PER CHEMO REGIM
     Route: 048
     Dates: start: 20160810
  16. FUROSEMIDE. [Concomitant]
     Active Substance: FUROSEMIDE
     Dosage: 40 MG, UNK
     Route: 042
     Dates: start: 20170809, end: 20170809

REACTIONS (1)
  - Acute myocardial infarction [Unknown]

NARRATIVE: CASE EVENT DATE: 20170912
